FAERS Safety Report 10223445 (Version 1)
Quarter: 2014Q2

REPORT INFORMATION
  Report Type: Spontaneous
  Country: US (occurrence: None)
  Receive Date: 20140605
  Receipt Date: 20140605
  Transmission Date: 20141212
  Serious: Yes (Hospitalization)
  Sender: FDA-Public Use
  Company Number: 2014PL000084

PATIENT
  Age: 46 Year
  Sex: Male

DRUGS (1)
  1. PROLEUKIN [Suspect]
     Indication: PRODUCT USED FOR UNKNOWN INDICATION
     Dosage: TWICE DAILY.
     Route: 058

REACTIONS (7)
  - Neuromyelitis optica [None]
  - Hyperbilirubinaemia [None]
  - Paraesthesia [None]
  - Muscle spasticity [None]
  - Muscular weakness [None]
  - Ataxia [None]
  - Gait disturbance [None]
